FAERS Safety Report 6802213-8 (Version None)
Quarter: 2010Q2

REPORT INFORMATION
  Report Type: 
  Country: None (occurrence: None)
  Receive Date: 20100629
  Receipt Date: 20081213
  Transmission Date: 20101027
  Serious: No
  Sender: FDA-Public Use
  Company Number: US-PFIZER INC-2006032736

PATIENT
  Sex: Male
  Weight: 77.1 kg

DRUGS (3)
  1. VIAGRA [Suspect]
     Indication: ERECTILE DYSFUNCTION
     Route: 065
  2. ALL OTHER NON-THERAPEUTIC PRODUCTS [Suspect]
     Indication: ILL-DEFINED DISORDER
     Route: 065
  3. FLOMAX [Concomitant]
     Indication: PROSTATOMEGALY
     Route: 065

REACTIONS (5)
  - BACK PAIN [None]
  - BLADDER IRRITATION [None]
  - DRUG INEFFECTIVE [None]
  - DYSURIA [None]
  - NEPHROLITHIASIS [None]
